FAERS Safety Report 18959589 (Version 1)
Quarter: 2021Q1

REPORT INFORMATION
  Report Type: Spontaneous
  Country: CA (occurrence: CA)
  Receive Date: 20210302
  Receipt Date: 20210302
  Transmission Date: 20210420
  Serious: Yes (Death)
  Sender: FDA-Public Use
  Company Number: CA-PFIZER INC-2021209689

PATIENT
  Age: 66 Year
  Sex: Female

DRUGS (6)
  1. FASLODEX [Concomitant]
     Active Substance: FULVESTRANT
  2. DOXEPIN [Concomitant]
     Active Substance: DOXEPIN
  3. CALCIUM [Concomitant]
     Active Substance: CALCIUM
  4. IBRANCE [Suspect]
     Active Substance: PALBOCICLIB
     Dosage: 125 MG, CYCLIC (TAKE 1 CAPSULE ONCE DAILY FOR 21 DAYS, OFF 7 DAYS)
     Route: 048
     Dates: start: 20201210
  5. LETROZOLE. [Concomitant]
     Active Substance: LETROZOLE
  6. CELEXA [CELECOXIB] [Concomitant]
     Active Substance: CELECOXIB

REACTIONS (1)
  - Death [Fatal]

NARRATIVE: CASE EVENT DATE: 20210208
